FAERS Safety Report 11643252 (Version 1)
Quarter: 2015Q4

REPORT INFORMATION
  Report Type: Other
  Country: KR (occurrence: KR)
  Receive Date: 20151020
  Receipt Date: 20151020
  Transmission Date: 20160304
  Serious: Yes (Other)
  Sender: FDA-Public Use
  Company Number: KR-LUPIN PHARMACEUTICALS INC.-2015-03222

PATIENT
  Age: 82 Year
  Sex: Male

DRUGS (7)
  1. OZAGREL SODIUM [Concomitant]
     Active Substance: OZAGREL
     Indication: ANTIPLATELET THERAPY
     Route: 065
  2. CLOPIDOGREL [Concomitant]
     Active Substance: CLOPIDOGREL BISULFATE
     Indication: ANTIPLATELET THERAPY
     Dosage: 75MG
     Route: 065
  3. REBAMIPIDE [Concomitant]
     Active Substance: REBAMIPIDE
     Indication: PROPHYLAXIS
     Route: 042
  4. NALOXONE [Concomitant]
     Active Substance: NALOXONE
     Indication: ANTIPLATELET THERAPY
     Dosage: 10MG
     Route: 042
  5. QUETIAPINE [Suspect]
     Active Substance: QUETIAPINE
     Indication: AGGRESSION
     Dosage: 50MG
     Route: 065
  6. MANNITOL. [Concomitant]
     Active Substance: MANNITOL
     Indication: ANTIPLATELET THERAPY
     Route: 042
  7. THIAMINE. [Concomitant]
     Active Substance: THIAMINE
     Indication: PROPHYLAXIS
     Dosage: 100MG
     Route: 042

REACTIONS (1)
  - Interstitial lung disease [Recovered/Resolved]
